FAERS Safety Report 18215340 (Version 2)
Quarter: 2020Q3

REPORT INFORMATION
  Report Type: Report from Study
  Country: None (occurrence: BR)
  Receive Date: 20200901
  Receipt Date: 20200925
  Transmission Date: 20201103
  Serious: Yes (Other)
  Sender: FDA-Public Use
  Company Number: BR-ABBVIE-20K-020-3496598-00

PATIENT
  Age: 55 Year
  Sex: Male
  Weight: 100 kg

DRUGS (3)
  1. SKYRIZI [Suspect]
     Active Substance: RISANKIZUMAB-RZAA
     Indication: PSORIASIS
  2. SKYRIZI [Suspect]
     Active Substance: RISANKIZUMAB-RZAA
     Indication: PSORIASIS
     Dosage: LOADING DOSE WEEK 0
     Route: 058
     Dates: start: 20200618, end: 20200618
  3. SKYRIZI [Suspect]
     Active Substance: RISANKIZUMAB-RZAA
     Indication: PSORIASIS
     Dosage: LOADING DOSE ? WEEK 04
     Route: 058
     Dates: start: 20200716, end: 20200716

REACTIONS (9)
  - Discomfort [Unknown]
  - Metabolic disorder [Unknown]
  - Therapeutic product effect incomplete [Unknown]
  - Psoriasis [Recovered/Resolved]
  - Wound [Not Recovered/Not Resolved]
  - Skin plaque [Not Recovered/Not Resolved]
  - Body height decreased [Unknown]
  - Skin lesion [Not Recovered/Not Resolved]
  - Psoriasis [Unknown]

NARRATIVE: CASE EVENT DATE: 2020
